FAERS Safety Report 20144851 (Version 1)
Quarter: 2021Q4

REPORT INFORMATION
  Report Type: Spontaneous
  Country: US (occurrence: US)
  Receive Date: 20211203
  Receipt Date: 20211203
  Transmission Date: 20220304
  Serious: Yes (Hospitalization, Other)
  Sender: FDA-Public Use
  Company Number: US-JNJFOC-20211149787

PATIENT

DRUGS (8)
  1. INVEGA SUSTENNA [Suspect]
     Active Substance: PALIPERIDONE PALMITATE
     Indication: Product used for unknown indication
     Route: 030
  2. INVEGA SUSTENNA [Suspect]
     Active Substance: PALIPERIDONE PALMITATE
     Route: 030
  3. INVEGA SUSTENNA [Suspect]
     Active Substance: PALIPERIDONE PALMITATE
     Route: 030
     Dates: end: 202108
  4. RISPERDAL [Suspect]
     Active Substance: RISPERIDONE
     Indication: Product used for unknown indication
     Route: 065
  5. BENADRYL [Concomitant]
     Active Substance: DIPHENHYDRAMINE HYDROCHLORIDE
  6. COGENTIN [Concomitant]
     Active Substance: BENZTROPINE MESYLATE
     Indication: Product used for unknown indication
  7. KLONOPIN [Concomitant]
     Active Substance: CLONAZEPAM
     Indication: Product used for unknown indication
  8. AMANTADINE [Concomitant]
     Active Substance: AMANTADINE

REACTIONS (21)
  - Hospitalisation [Unknown]
  - Suicidal ideation [Unknown]
  - Seizure [Unknown]
  - Dystonia [Unknown]
  - Tardive dyskinesia [Unknown]
  - Osteomyelitis [Unknown]
  - Mass [Unknown]
  - Blood glucose fluctuation [Unknown]
  - Hot flush [Unknown]
  - Orthostatic hypotension [Unknown]
  - Blood cholesterol increased [Unknown]
  - Vertigo [Unknown]
  - Hypersensitivity [Unknown]
  - Pain [Unknown]
  - Incorrect route of product administration [Unknown]
  - Off label use [Unknown]
  - Eye movement disorder [Recovering/Resolving]
  - Akathisia [Unknown]
  - Tooth extraction [Unknown]
  - Joint dislocation [Unknown]
  - Gynaecomastia [Unknown]

NARRATIVE: CASE EVENT DATE: 20200101
